FAERS Safety Report 10575914 (Version 1)
Quarter: 2014Q4

REPORT INFORMATION
  Report Type: Spontaneous
  Country: US (occurrence: None)
  Receive Date: 20141107
  Receipt Date: 20141107
  Transmission Date: 20150529
  Serious: Yes (Hospitalization)
  Sender: FDA-Public Use
  Company Number: KAD201408-001044

PATIENT
  Age: 59 Year
  Sex: Male

DRUGS (5)
  1. PEGINTERFERON ALFA-2A [Suspect]
     Active Substance: PEGINTERFERON ALFA-2A
     Indication: CHRONIC HEPATITIS C
  2. LAMOTRIGINE (LAMOTRIGINE) (LAMOTRIGINE) [Concomitant]
     Active Substance: LAMOTRIGINE
  3. RIBAVIRIN. [Suspect]
     Active Substance: RIBAVIRIN
     Indication: CHRONIC HEPATITIS C
  4. METHIMAZOLE (METHIMAZOLE) (METHIMAZOLE) [Concomitant]
  5. TELAPREVIR (TELAPREVIR) [Suspect]
     Active Substance: TELAPREVIR
     Indication: CHRONIC HEPATITIS C

REACTIONS (2)
  - Alopecia areata [None]
  - Alopecia universalis [None]
